FAERS Safety Report 6418644-4 (Version None)
Quarter: 2009Q4

REPORT INFORMATION
  Report Type: 
  Country: None (occurrence: None)
  Receive Date: 20091026
  Receipt Date: 20091013
  Transmission Date: 20100525
  Serious: Yes (Other)
  Sender: FDA-Public Use
  Company Number: ADR40372009

PATIENT
  Age: 68 Year
  Sex: Female

DRUGS (4)
  1. SIMVASTATIN [Suspect]
     Dosage: 10 MG, 1/1 DAYS
     Route: 048
     Dates: start: 20060301, end: 20080829
  2. ASPRIRIN [Concomitant]
  3. BENDROFLUMETHIAZIDE [Concomitant]
  4. LISINOPRIL [Concomitant]

REACTIONS (4)
  - COUGH [None]
  - HEART RATE INCREASED [None]
  - PALPITATIONS [None]
  - TACHYCARDIA [None]
